FAERS Safety Report 5881575-2 (Version None)
Quarter: 2008Q3

REPORT INFORMATION
  Report Type: 
  Country: None (occurrence: None)
  Receive Date: 20080912
  Receipt Date: 20080707
  Transmission Date: 20090109
  Serious: No
  Sender: FDA-Public Use
  Company Number: US-ABBOTT-08P-163-0460831-00

PATIENT
  Sex: Female
  Weight: 140 kg

DRUGS (5)
  1. HUMIRA [Suspect]
     Indication: ARTHRITIS
     Route: 058
     Dates: start: 20060101
  2. PREDNISONE TAB [Concomitant]
     Indication: DRUG USE FOR UNKNOWN INDICATION
     Route: 048
  3. ATENOLOL [Concomitant]
     Indication: DRUG USE FOR UNKNOWN INDICATION
     Route: 048
  4. TAROXETINE [Concomitant]
     Indication: DRUG USE FOR UNKNOWN INDICATION
     Route: 048
  5. VICODINE [Concomitant]
     Indication: PAIN
     Route: 048

REACTIONS (2)
  - DRUG DOSE OMISSION [None]
  - INJECTION SITE PAIN [None]
